FAERS Safety Report 9494690 (Version 4)
Quarter: 2013Q4

REPORT INFORMATION
  Report Type: Spontaneous
  Country: DK (occurrence: DK)
  Receive Date: 20130903
  Receipt Date: 20131016
  Transmission Date: 20140711
  Serious: Yes (Other)
  Sender: FDA-Public Use
  Company Number: DK-SANOFI-AVENTIS-2012SA084862

PATIENT
  Age: 57 Year
  Sex: Female
  Weight: 69 kg

DRUGS (9)
  1. OXALIPLATIN [Suspect]
     Indication: HER-2 POSITIVE BREAST CANCER
     Route: 065
  2. HERCEPTIN [Suspect]
     Indication: HER-2 POSITIVE BREAST CANCER
     Route: 065
  3. HERCEPTIN [Suspect]
     Indication: HER-2 POSITIVE BREAST CANCER
     Dosage: LOADING DOSE: 280MG
     Route: 065
     Dates: start: 20061129, end: 20080326
  4. XELODA [Suspect]
     Indication: HER-2 POSITIVE BREAST CANCER
     Route: 065
  5. ARIMIDEX [Suspect]
     Indication: HER-2 POSITIVE BREAST CANCER
     Route: 065
  6. ZOLADEX [Suspect]
     Indication: HER-2 POSITIVE BREAST CANCER
     Route: 065
  7. FASLODEX [Suspect]
     Indication: HER-2 POSITIVE BREAST CANCER
     Route: 065
  8. VINORELBINE [Suspect]
     Indication: HER-2 POSITIVE BREAST CANCER
     Route: 065
     Dates: start: 20121026
  9. TAXOL [Suspect]
     Indication: BREAST CANCER
     Dosage: DOSAGE: 140/120MG
     Route: 042
     Dates: start: 20061206, end: 20070606

REACTIONS (8)
  - Ejection fraction decreased [Recovered/Resolved]
  - Ejection fraction decreased [Recovered/Resolved]
  - Peripheral motor neuropathy [Not Recovered/Not Resolved]
  - Metastases to liver [Unknown]
  - Peripheral sensory neuropathy [Not Recovered/Not Resolved]
  - Neuralgia [Not Recovered/Not Resolved]
  - Hypertension [Not Recovered/Not Resolved]
  - Dyspnoea exertional [Not Recovered/Not Resolved]
